FAERS Safety Report 13578130 (Version 1)
Quarter: 2017Q2

REPORT INFORMATION
  Report Type: Spontaneous
  Country: US (occurrence: US)
  Receive Date: 20170524
  Receipt Date: 20170524
  Transmission Date: 20170830
  Serious: No
  Sender: FDA-Public Use
  Company Number: US-BAYER-2017-095477

PATIENT
  Age: 10 Year
  Sex: Male

DRUGS (2)
  1. CLARITIN [Suspect]
     Active Substance: LORATADINE
     Dosage: UNK
  2. ROBITUSSIN ALLERGY AND COUGH [Concomitant]
     Dosage: UNK

REACTIONS (2)
  - Cough [Unknown]
  - Extra dose administered [Unknown]
